FAERS Safety Report 7229873-4 (Version None)
Quarter: 2011Q1

REPORT INFORMATION
  Report Type: 
  Country: None (occurrence: None)
  Receive Date: 20110117
  Receipt Date: 20110105
  Transmission Date: 20110831
  Serious: Yes (Disabling, Other)
  Sender: FDA-Public Use
  Company Number: US-SANOFI-AVENTIS-2011SA000917

PATIENT
  Age: 83 Year
  Sex: Female

DRUGS (5)
  1. PLAVIX [Suspect]
     Route: 048
     Dates: start: 20101013
  2. METOPROLOL [Concomitant]
  3. ZOCOR [Concomitant]
  4. ALL OTHER THERAPEUTIC PRODUCTS [Concomitant]
  5. ASPIRIN [Concomitant]

REACTIONS (3)
  - CORONARY ARTERY THROMBOSIS [None]
  - POST PROCEDURAL COMPLICATION [None]
  - PAIN [None]
